FAERS Safety Report 20134562 (Version 1)
Quarter: 2021Q4

REPORT INFORMATION
  Report Type: Spontaneous
  Country: CA (occurrence: CA)
  Receive Date: 20211201
  Receipt Date: 20211201
  Transmission Date: 20220304
  Serious: Yes (Hospitalization)
  Sender: FDA-Public Use
  Company Number: CA-TEVA-2021-CA-1982886

PATIENT
  Sex: Male

DRUGS (12)
  1. ARIPIPRAZOLE [Suspect]
     Active Substance: ARIPIPRAZOLE
     Indication: Bipolar disorder
     Route: 065
  2. BISOPROLOL [Suspect]
     Active Substance: BISOPROLOL
     Indication: Hypertension
     Route: 065
  3. PAROXETINE [Suspect]
     Active Substance: PAROXETINE
     Indication: Depression
     Route: 065
  4. RISPERIDONE [Suspect]
     Active Substance: RISPERIDONE
     Indication: Bipolar disorder
     Route: 065
  5. BENZTROPINE [Concomitant]
     Active Substance: BENZTROPINE
  6. DESMOPRESSIN [Concomitant]
     Active Substance: DESMOPRESSIN
  7. DIVALPROEX SODIUM [Concomitant]
     Active Substance: DIVALPROEX SODIUM
  8. GABAPENTIN [Concomitant]
     Active Substance: GABAPENTIN
  9. MEDROXYPROGESTERONE [Concomitant]
     Active Substance: MEDROXYPROGESTERONE
  10. QUINAPRIL [Concomitant]
     Active Substance: QUINAPRIL
  11. ROSUVASTATIN [Concomitant]
     Active Substance: ROSUVASTATIN
     Route: 058
  12. SAPHRIS [Concomitant]
     Active Substance: ASENAPINE MALEATE

REACTIONS (3)
  - Extrapyramidal disorder [Recovering/Resolving]
  - Sedation [Recovering/Resolving]
  - Serotonin syndrome [Recovering/Resolving]
